FAERS Safety Report 17655698 (Version 1)
Quarter: 2020Q2

REPORT INFORMATION
  Report Type: Spontaneous
  Country: US (occurrence: US)
  Receive Date: 20200410
  Receipt Date: 20200410
  Transmission Date: 20200713
  Serious: Yes (Other)
  Sender: FDA-Public Use
  Company Number: US-MYLANLABS-2020M1034382

PATIENT
  Age: 76 Year
  Sex: Male
  Weight: 93 kg

DRUGS (2)
  1. MUSE [Suspect]
     Active Substance: ALPROSTADIL
     Indication: ERECTILE DYSFUNCTION
     Dosage: 1000 MICROGRAM (IF NEEDED, BEFORE INTERCOURSE)
     Route: 066
     Dates: start: 202003, end: 20200320
  2. LISINOPRIL AND HYDROCHLOROTHIAZIDE [Concomitant]
     Active Substance: HYDROCHLOROTHIAZIDE\LISINOPRIL
     Indication: BLOOD PRESSURE INCREASED
     Dosage: UNK, 1/2 TABLET
     Route: 048

REACTIONS (7)
  - Dysstasia [Unknown]
  - Genital pain [Recovered/Resolved]
  - Adverse event [Unknown]
  - Groin pain [Recovered/Resolved]
  - Pain in extremity [Recovered/Resolved]
  - Pain [Recovered/Resolved]
  - Drug ineffective [Recovering/Resolving]

NARRATIVE: CASE EVENT DATE: 202003
